FAERS Safety Report 12576192 (Version 1)
Quarter: 2016Q3

REPORT INFORMATION
  Report Type: Other
  Country: US (occurrence: US)
  Receive Date: 20160720
  Receipt Date: 20160720
  Transmission Date: 20161109
  Serious: Yes (Other)
  Sender: FDA-Public Use
  Company Number: US-SHEFFIELD PHARMACEUTICALS, LLC-1055309

PATIENT
  Age: 58 Year
  Sex: Female
  Weight: 102.27 kg

DRUGS (1)
  1. EQUATE ORASOL [Suspect]
     Active Substance: BENZOCAINE
     Route: 048
     Dates: start: 20160705, end: 20160707

REACTIONS (1)
  - Red blood cell abnormality [Recovered/Resolved]

NARRATIVE: CASE EVENT DATE: 20160705
